FAERS Safety Report 14109070 (Version 1)
Quarter: 2017Q4

REPORT INFORMATION
  Report Type: Spontaneous
  Country: US (occurrence: US)
  Receive Date: 20171019
  Receipt Date: 20171019
  Transmission Date: 20180321
  Serious: No
  Sender: FDA-Public Use
  Company Number: US-OTSUKA-2017_015635

PATIENT

DRUGS (7)
  1. SEROQUEL [Suspect]
     Active Substance: QUETIAPINE FUMARATE
     Dosage: UP TO 800MG, QD
     Route: 065
  2. LATUDA [Suspect]
     Active Substance: LURASIDONE HYDROCHLORIDE
     Dosage: 40 MG, QD
     Route: 065
  3. REXULTI [Suspect]
     Active Substance: BREXPIPRAZOLE
     Indication: PSYCHOTIC DISORDER
     Dosage: 3 MG, QD (8 AM)
     Route: 065
  4. SEROQUEL [Suspect]
     Active Substance: QUETIAPINE FUMARATE
     Dosage: 400 MG, QD (AT 7 PM)
     Route: 065
  5. ATIVAN [Concomitant]
     Active Substance: LORAZEPAM
     Indication: ANXIETY
     Dosage: UNK
     Route: 065
  6. LATUDA [Suspect]
     Active Substance: LURASIDONE HYDROCHLORIDE
     Indication: PRODUCT USED FOR UNKNOWN INDICATION
     Dosage: 60 MG, QD
     Route: 065
  7. SEROQUEL [Suspect]
     Active Substance: QUETIAPINE FUMARATE
     Indication: PSYCHOTIC DISORDER
     Dosage: UNK (MEDIUM DOSE)
     Route: 065

REACTIONS (15)
  - Intrusive thoughts [Unknown]
  - Fear [Unknown]
  - Feeling abnormal [Unknown]
  - Dysphoria [Unknown]
  - Movement disorder [Unknown]
  - Laziness [Unknown]
  - Poverty of speech [Unknown]
  - Sleep disorder [Unknown]
  - Aphasia [Unknown]
  - Weight increased [Unknown]
  - Emotional distress [Unknown]
  - Crying [Unknown]
  - Somnolence [Unknown]
  - Sedation [Unknown]
  - Disease recurrence [Unknown]
